FAERS Safety Report 9052244 (Version 3)
Quarter: 2013Q3

REPORT INFORMATION
  Report Type: Spontaneous
  Country: FR (occurrence: FR)
  Receive Date: 20130206
  Receipt Date: 20130703
  Transmission Date: 20140515
  Serious: Yes (Hospitalization, Other)
  Sender: FDA-Public Use
  Company Number: FR-009507513-1301FRA014382

PATIENT
  Age: 47 Year
  Sex: Female
  Weight: 55 kg

DRUGS (1)
  1. NEXPLANON [Suspect]
     Indication: CONTRACEPTION
     Dosage: UNK
     Route: 058
     Dates: start: 201210, end: 20130123

REACTIONS (4)
  - Pulmonary embolism [Recovering/Resolving]
  - Deep vein thrombosis [Recovering/Resolving]
  - Carbohydrate deficient transferrin increased [Unknown]
  - Gamma-glutamyltransferase increased [Unknown]
